FAERS Safety Report 12047517 (Version 1)
Quarter: 2016Q1

REPORT INFORMATION
  Report Type: Spontaneous
  Country: CN (occurrence: CN)
  Receive Date: 20160208
  Receipt Date: 20160208
  Transmission Date: 20160526
  Serious: Yes (Disabling)
  Sender: FDA-Public Use
  Company Number: CN-NOVOPROD-478751

PATIENT
  Age: 52 Year
  Sex: Male
  Weight: 55 kg

DRUGS (2)
  1. NOVORAPID [Concomitant]
     Active Substance: INSULIN ASPART
     Indication: DIABETES MELLITUS
     Dosage: 8 U, TID
     Route: 058
     Dates: start: 20150729, end: 20150731
  2. LEVEMIR PENFILL [Suspect]
     Active Substance: INSULIN DETEMIR
     Indication: DIABETES MELLITUS
     Dosage: 8 U, QD
     Route: 058
     Dates: start: 20150729, end: 20150731

REACTIONS (1)
  - Refraction disorder [Not Recovered/Not Resolved]

NARRATIVE: CASE EVENT DATE: 20150731
